FAERS Safety Report 5127921-9 (Version None)
Quarter: 2006Q4

REPORT INFORMATION
  Report Type: 
  Country: None (occurrence: None)
  Receive Date: 20061013
  Receipt Date: 20061013
  Transmission Date: 20070319
  Serious: Yes (Hospitalization)
  Sender: FDA-Public Use
  Company Number: None

PATIENT
  Sex: Male
  Weight: 82 kg

DRUGS (1)
  1. IMMUNE GLOBULIN INTRAVENOUS (HUMAN) [Suspect]
     Indication: HYPOGAMMAGLOBULINAEMIA
     Dosage: 50 CC/HR TO 150 CC/HR TKO IV
     Route: 042
     Dates: start: 20060220, end: 20060220

REACTIONS (6)
  - BLOOD PRESSURE SYSTOLIC INCREASED [None]
  - CHILLS [None]
  - FEELING ABNORMAL [None]
  - INFUSION RELATED REACTION [None]
  - MUSCLE SPASMS [None]
  - RESPIRATORY RATE INCREASED [None]
